FAERS Safety Report 16031351 (Version 1)
Quarter: 2019Q1

REPORT INFORMATION
  Report Type: Spontaneous
  Country: US (occurrence: US)
  Receive Date: 20190304
  Receipt Date: 20190304
  Transmission Date: 20190418
  Serious: Yes (Hospitalization, Other)
  Sender: FDA-Public Use
  Company Number: US-ASTRAZENECA-2019SE33404

PATIENT
  Age: 851 Month
  Sex: Male
  Weight: 74.4 kg

DRUGS (20)
  1. ELIQUIS [Concomitant]
     Active Substance: APIXABAN
     Indication: ANTICOAGULANT THERAPY
     Route: 048
     Dates: start: 201701
  2. FLUCONAZOLE. [Concomitant]
     Active Substance: FLUCONAZOLE
     Indication: CRYPTOCOCCOSIS
     Route: 048
     Dates: start: 2011
  3. DIPHENOXYLATE/ATROPINE [Suspect]
     Active Substance: ATROPINE\DIPHENOXYLATE
     Indication: DIARRHOEA
     Dosage: MYLAN (2.5/0.025MG ONE TABLET FOUR TIMES A DAY)
     Route: 048
     Dates: start: 20170605, end: 201707
  4. ACYCLOVIR. [Concomitant]
     Active Substance: ACYCLOVIR
     Indication: PROPHYLAXIS
     Dosage: 400 MG TABLET ONCE A DAY
     Route: 048
     Dates: start: 200808
  5. PRILOSEC [Suspect]
     Active Substance: OMEPRAZOLE MAGNESIUM
     Route: 048
  6. BACTRIM [Concomitant]
     Active Substance: SULFAMETHOXAZOLE\TRIMETHOPRIM
     Indication: INFECTION
     Dosage: 400/80MG TABLET ONCE A DAY
     Route: 048
     Dates: start: 200808
  7. ACETAMINOPHEN W/HYDROCODONE [Concomitant]
     Active Substance: ACETAMINOPHEN\HYDROCODONE
     Indication: BACK PAIN
     Dosage: 10/325MG TABLET EVERY 4 HOURS AS NEEDED
  8. SPIRONOLACTONE. [Concomitant]
     Active Substance: SPIRONOLACTONE
     Indication: SWELLING
     Dosage: 25MG HALF TABLET ONCE A DAY BY MOUTH
     Route: 048
  9. VITAMIN B12 [Concomitant]
     Active Substance: CYANOCOBALAMIN
     Dosage: 1000MCG INJECTION ONCE A MONTH
     Dates: start: 2011
  10. ONDANSETRON [Concomitant]
     Active Substance: ONDANSETRON
     Indication: NAUSEA
     Dates: start: 2015
  11. FENTANYL CITRATE. [Suspect]
     Active Substance: FENTANYL CITRATE
     Route: 048
  12. IMODIUM [Concomitant]
     Active Substance: LOPERAMIDE HYDROCHLORIDE
     Indication: DIARRHOEA
     Dosage: 2MG TABLET AS NEEDED
  13. MIDODRINE [Concomitant]
     Active Substance: MIDODRINE
     Indication: CARDIAC DISORDER
     Dates: start: 2017
  14. REVLIMID [Concomitant]
     Active Substance: LENALIDOMIDE
  15. DEXAMETHASONE. [Concomitant]
     Active Substance: DEXAMETHASONE
     Indication: ILL-DEFINED DISORDER
     Route: 048
  16. FENTANYL. [Concomitant]
     Active Substance: FENTANYL
     Indication: PAIN
     Dosage: 25MG PATCH APPLIED EVERY THREE DAYS
     Dates: start: 201608
  17. ONDANSETRON [Concomitant]
     Active Substance: ONDANSETRON
     Indication: VOMITING
     Dates: start: 2015
  18. RANITIDINE. [Concomitant]
     Active Substance: RANITIDINE
     Indication: INTERNAL HAEMORRHAGE
     Dosage: 150MG TABLET TWICE A DAY BY MOUTH
     Route: 048
  19. TYLENOL [Concomitant]
     Active Substance: ACETAMINOPHEN
     Indication: PYREXIA
     Dosage: 500.0MG AS REQUIRED
  20. VITRON-C [Concomitant]
     Active Substance: ASCORBIC ACID\IRON
     Indication: IRON DEFICIENCY
     Dosage: TABLET TWICE A DAY BY MOUTH
     Route: 048
     Dates: start: 2011

REACTIONS (5)
  - Thrombosis [Unknown]
  - Drug hypersensitivity [Unknown]
  - Pneumonia aspiration [Unknown]
  - Faecaloma [Recovered/Resolved]
  - Diarrhoea [Recovering/Resolving]

NARRATIVE: CASE EVENT DATE: 201511
